FAERS Safety Report 9887773 (Version 1)
Quarter: 2014Q1

REPORT INFORMATION
  Report Type: Spontaneous
  Country: US (occurrence: None)
  Receive Date: 20140206
  Receipt Date: 20140206
  Transmission Date: 20141002
  Serious: Yes (Other)
  Sender: FDA-Public Use
  Company Number: TPU2014-00034

PATIENT
  Sex: Female

DRUGS (1)
  1. LIDODERM [Suspect]
     Indication: PRODUCT USED FOR UNKNOWN INDICATION
     Route: 061
     Dates: start: 201308

REACTIONS (2)
  - Convulsion [None]
  - Cervical vertebral fracture [None]
